FAERS Safety Report 22099597 (Version 1)
Quarter: 2023Q1

REPORT INFORMATION
  Report Type: Spontaneous
  Country: US (occurrence: None)
  Receive Date: 20230315
  Receipt Date: 20230315
  Transmission Date: 20230417
  Serious: No
  Sender: FDA-Public Use
  Company Number: None

PATIENT
  Sex: Female

DRUGS (1)
  1. ICATIBANT ACETATE [Suspect]
     Active Substance: ICATIBANT ACETATE
     Indication: Complement deficiency disease
     Route: 058
     Dates: start: 20210928

REACTIONS (6)
  - Swollen tongue [None]
  - Pharyngeal swelling [None]
  - Peripheral swelling [None]
  - Swelling face [None]
  - Abdominal wall oedema [None]
  - Condition aggravated [None]
